FAERS Safety Report 23386153 (Version 1)
Quarter: 2024Q1

REPORT INFORMATION
  Report Type: Other
  Country: US (occurrence: US)
  Receive Date: 20240110
  Receipt Date: 20240110
  Transmission Date: 20240410
  Serious: Yes (Life-Threatening, Hospitalization, Other)
  Sender: FDA-Public Use
  Company Number: US-DEXPHARM-20233312

PATIENT
  Age: 64 Year
  Sex: Male

DRUGS (6)
  1. LEVETIRACETAM [Suspect]
     Active Substance: LEVETIRACETAM
     Indication: Seizure
  2. LEVETIRACETAM [Suspect]
     Active Substance: LEVETIRACETAM
     Indication: Seizure
  3. LORAZEPAM [Concomitant]
     Active Substance: LORAZEPAM
     Indication: Sedation
  4. MIDAZOLAM [Concomitant]
     Active Substance: MIDAZOLAM
     Indication: Sedation
  5. VANCOMYCIN [Concomitant]
     Active Substance: VANCOMYCIN
     Indication: Central nervous system infection
  6. DEXAMETHASONE [Concomitant]
     Active Substance: DEXAMETHASONE
     Indication: Central nervous system infection

REACTIONS (1)
  - Rhabdomyolysis [Recovering/Resolving]
